FAERS Safety Report 23055356 (Version 1)
Quarter: 2023Q4

REPORT INFORMATION
  Report Type: Spontaneous
  Country: DE (occurrence: DE)
  Receive Date: 20231011
  Receipt Date: 20231011
  Transmission Date: 20240110
  Serious: Yes (Life-Threatening, Other)
  Sender: FDA-Public Use
  Company Number: DE-PIRAMAL CRITICAL CARE LIMITED-2023-PPL-000363

PATIENT
  Age: 66 Year
  Sex: Male

DRUGS (8)
  1. PROPOFOL [Suspect]
     Active Substance: PROPOFOL
     Indication: Product used for unknown indication
     Dosage: 350 MG/H PROPOFOL BEFORE ISO
     Route: 065
  2. PROPOFOL [Suspect]
     Active Substance: PROPOFOL
     Dosage: 1 HOUR IN COMBINATION WITH 150 MG/H
     Route: 065
  3. ISOFLURANE [Suspect]
     Active Substance: ISOFLURANE
     Indication: Product used for unknown indication
     Dosage: 6-8 ML ISOFLURANE MAX
  4. ISOFLURANE [Suspect]
     Active Substance: ISOFLURANE
     Dosage: 8 ML/H MAC 0.4-0.6 VOL%
     Dates: start: 20230908, end: 20230909
  5. SUFENTANIL CITRATE [Suspect]
     Active Substance: SUFENTANIL CITRATE
     Indication: Product used for unknown indication
     Dosage: 30 UG
  6. NOREPINEPHRINE HYDROCHLORIDE, (+/-)- [Suspect]
     Active Substance: NOREPINEPHRINE HYDROCHLORIDE, (+/-)-
     Indication: Product used for unknown indication
     Dosage: UNK
  7. DEXMEDETOMIDINE [Suspect]
     Active Substance: DEXMEDETOMIDINE
     Indication: Product used for unknown indication
     Dosage: 90 UG
  8. LORMETAZEPAM [Suspect]
     Active Substance: LORMETAZEPAM
     Indication: Product used for unknown indication
     Dosage: 0.8 MG/H

REACTIONS (3)
  - Multiple organ dysfunction syndrome [None]
  - Hyperthermia malignant [None]
  - Pneumonia aspiration [None]

NARRATIVE: CASE EVENT DATE: 20230909
